FAERS Safety Report 24286593 (Version 1)
Quarter: 2024Q3

REPORT INFORMATION
  Report Type: Spontaneous
  Country: TW (occurrence: TW)
  Receive Date: 20240905
  Receipt Date: 20240905
  Transmission Date: 20241017
  Serious: Yes (Life-Threatening, Other)
  Sender: FRESENIUS KABI
  Company Number: TW-FreseniusKabi-FK202413417

PATIENT
  Age: 43 Year
  Sex: Female
  Weight: 65.6 kg

DRUGS (5)
  1. ROCURONIUM BROMIDE [Suspect]
     Active Substance: ROCURONIUM BROMIDE
     Indication: Induction of anaesthesia
     Dosage: ROUTE: INTRAVENOUS
     Dates: start: 20240712, end: 20240712
  2. PROPOFOL [Concomitant]
     Active Substance: PROPOFOL
     Indication: Anaesthesia
     Dosage: INTRAVENOUS
     Dates: start: 20240712, end: 20240712
  3. FENTANYL CITRATE [Concomitant]
     Active Substance: FENTANYL CITRATE
     Indication: Anaesthesia
     Dosage: ROUTE: INTRAVENOUS
     Dates: start: 20240712, end: 20240712
  4. DEXMEDETOMIDINE [Concomitant]
     Active Substance: DEXMEDETOMIDINE
     Indication: Anaesthesia
     Dosage: DOSAGE: 200 MCG ?ROUTE: INTRAVENOUS
     Dates: start: 20240712, end: 20240712
  5. REMIMAZOLAM BESYLATE [Concomitant]
     Indication: Anaesthesia
     Dosage: ROUTE: INTRAVENOUS
     Dates: start: 20240712, end: 20240712

REACTIONS (1)
  - Anaphylactic shock [Recovered/Resolved]

NARRATIVE: CASE EVENT DATE: 20240712
